FAERS Safety Report 23954136 (Version 1)
Quarter: 2024Q2

REPORT INFORMATION
  Report Type: Report from Study
  Country: US (occurrence: US)
  Receive Date: 20240609
  Receipt Date: 20240609
  Transmission Date: 20240716
  Serious: Yes (Other)
  Sender: FDA-Public Use
  Company Number: US-ABBVIE-5787525

PATIENT
  Sex: Female

DRUGS (1)
  1. SKYRIZI [Suspect]
     Active Substance: RISANKIZUMAB-RZAA
     Indication: Psoriasis
     Route: 058
     Dates: start: 20231018

REACTIONS (5)
  - Spinal operation [Unknown]
  - Vomiting [Recovering/Resolving]
  - Vocal cord disorder [Unknown]
  - Ankylosing spondylitis [Unknown]
  - Complex regional pain syndrome [Unknown]
